FAERS Safety Report 6767114-2 (Version None)
Quarter: 2010Q2

REPORT INFORMATION
  Report Type: 
  Country: None (occurrence: None)
  Receive Date: 20100611
  Receipt Date: 20100611
  Transmission Date: 20101027
  Serious: Yes (Other)
  Sender: FDA-Public Use
  Company Number: None

PATIENT
  Age: 75 Year
  Sex: Female
  Weight: 65.7716 kg

DRUGS (2)
  1. ZETIA [Suspect]
     Indication: BLOOD CHOLESTEROL INCREASED
     Dosage: 10MG QD PO
     Route: 048
     Dates: start: 20090701, end: 20100501
  2. HYDROCHLORATHYAZIDE [Concomitant]

REACTIONS (1)
  - PLATELET COUNT DECREASED [None]
